FAERS Safety Report 4579922-7 (Version None)
Quarter: 2005Q1

REPORT INFORMATION
  Report Type: 
  Country: None (occurrence: None)
  Receive Date: 20050210
  Receipt Date: 20050126
  Transmission Date: 20050727
  Serious: Yes (Death)
  Sender: FDA-Public Use
  Company Number: 2004AL000553

PATIENT
  Age: 20 Year
  Sex: Male

DRUGS (3)
  1. TRAMADOL HCL [Suspect]
     Dosage: PO
     Route: 048
  2. METHADONE [Suspect]
     Dosage: PO
     Route: 048
  3. METHOCARBAMOL [Suspect]
     Dosage: PO
     Route: 048

REACTIONS (6)
  - ASPIRATION [None]
  - CARDIO-RESPIRATORY ARREST [None]
  - DRUG ABUSER [None]
  - MULTIPLE DRUG OVERDOSE [None]
  - SNORING [None]
  - VOMITING [None]
